FAERS Safety Report 9491986 (Version 3)
Quarter: 2014Q1

REPORT INFORMATION
  Report Type: Spontaneous
  Country: IE (occurrence: None)
  Receive Date: 20130827
  Receipt Date: 20140218
  Transmission Date: 20141002
  Serious: Yes (Other)
  Sender: FDA-Public Use
  Company Number: DSM-2013-00763

PATIENT
  Age: 51 Year
  Sex: Male

DRUGS (3)
  1. OLMESARTAN MEDOXOMIL [Suspect]
     Indication: HYPERTENSION
     Route: 048
     Dates: start: 201207
  2. NEBILET [Suspect]
     Indication: HYPERTENSION
     Dates: start: 201210
  3. PROTIUM (PANTOPRAZOLE SODIUM) (PANTOPRAZOLE SODIUM) [Concomitant]

REACTIONS (1)
  - Pseudolymphoma [None]
